FAERS Safety Report 8051137-X (Version None)
Quarter: 2012Q1

REPORT INFORMATION
  Report Type: 
  Country: None (occurrence: None)
  Receive Date: 20120117
  Receipt Date: 20120112
  Transmission Date: 20120608
  Serious: Yes (Other)
  Sender: FDA-Public Use
  Company Number: PHHY2011JP109810

PATIENT
  Age: 80 Year
  Sex: Male

DRUGS (3)
  1. EQUA [Suspect]
     Indication: DIABETES MELLITUS
     Dosage: 50 MG, DAILY
     Route: 048
     Dates: start: 20110924, end: 20111213
  2. CALCIUM CHANNEL BLOCKERS [Concomitant]
  3. DIOVAN [Suspect]
     Dosage: 80 MG, DAILY
     Route: 048
     Dates: end: 20111213

REACTIONS (7)
  - ALANINE AMINOTRANSFERASE INCREASED [None]
  - CARDIAC FAILURE CONGESTIVE [None]
  - OEDEMA [None]
  - ASPARTATE AMINOTRANSFERASE INCREASED [None]
  - ASCITES [None]
  - MALAISE [None]
  - WEIGHT INCREASED [None]
